FAERS Safety Report 23905478 (Version 1)
Quarter: 2024Q2

REPORT INFORMATION
  Report Type: Spontaneous
  Country: US (occurrence: US)
  Receive Date: 20240527
  Receipt Date: 20240527
  Transmission Date: 20240716
  Serious: No
  Sender: FDA-Public Use
  Company Number: US-PFIZER INC-202400175909

PATIENT
  Sex: Male

DRUGS (1)
  1. RITLECITINIB [Suspect]
     Active Substance: RITLECITINIB

REACTIONS (1)
  - Hair colour changes [Unknown]
